FAERS Safety Report 5161389-1 (Version None)
Quarter: 2006Q4

REPORT INFORMATION
  Report Type: 
  Country: None (occurrence: None)
  Receive Date: 20061130
  Receipt Date: 20060811
  Transmission Date: 20070319
  Serious: No
  Sender: FDA-Public Use
  Company Number: US-GLAXOSMITHKLINE-A0616323A

PATIENT
  Age: 37 Year
  Sex: Male
  Weight: 80 kg

DRUGS (3)
  1. EPZICOM [Suspect]
     Indication: HIV INFECTION
     Dosage: 1TAB PER DAY
     Route: 048
     Dates: start: 20060101, end: 20060101
  2. SUSTIVA [Concomitant]
  3. BACTRIM [Concomitant]

REACTIONS (4)
  - FATIGUE [None]
  - NAUSEA [None]
  - PYREXIA [None]
  - RASH [None]
